FAERS Safety Report 23324809 (Version 1)
Quarter: 2023Q4

REPORT INFORMATION
  Report Type: Spontaneous
  Country: IT (occurrence: IT)
  Receive Date: 20231221
  Receipt Date: 20231221
  Transmission Date: 20240109
  Serious: Yes (Death)
  Sender: FDA-Public Use
  Company Number: None

PATIENT
  Age: 90 Year

DRUGS (9)
  1. METFORMIN HYDROCHLORIDE [Suspect]
     Active Substance: METFORMIN HYDROCHLORIDE
     Dosage: UNTIL 2023-05-26: HOME TREATMENT WITH METFORMIN 500 X 2 AND DIAMICRON 30 MG FROM 2023-05-26: REDU...
     Route: 048
  2. ASPIRIN [Concomitant]
     Active Substance: ASPIRIN
  3. CLOPIDOGREL [Concomitant]
     Active Substance: CLOPIDOGREL BISULFATE
  4. LINAGLIPTIN [Concomitant]
     Active Substance: LINAGLIPTIN
  5. BISOPROLOL [Concomitant]
     Active Substance: BISOPROLOL\BISOPROLOL FUMARATE
  6. ATORVASTATIN [Concomitant]
     Active Substance: ATORVASTATIN
  7. BROMAZEPAM [Concomitant]
     Active Substance: BROMAZEPAM
  8. VALSARTAN [Concomitant]
     Active Substance: VALSARTAN
  9. LASIX [Concomitant]
     Active Substance: FUROSEMIDE
     Dosage: 25 MG
     Route: 048

REACTIONS (3)
  - Multiple organ dysfunction syndrome [Fatal]
  - Toxicity to various agents [Fatal]
  - Metabolic acidosis [Fatal]

NARRATIVE: CASE EVENT DATE: 20230914
